FAERS Safety Report 8131488 (Version 3)
Quarter: 2018Q4

REPORT INFORMATION
  Report Type: Spontaneous
  Country: DE (occurrence: US)
  Receive Date: 20110912
  Receipt Date: 20181005
  Transmission Date: 20190205
  Serious: Yes (Hospitalization)
  Sender: FDA-Public Use
  Company Number: DE-PFIZER INC-810-0719-M0200001

PATIENT
  Sex: Male

DRUGS (2)
  1. LOPID [Suspect]
     Active Substance: GEMFIBROZIL
     Indication: ILL-DEFINED DISORDER
     Dosage: UNK
  2. CERIVASTATIN [Suspect]
     Active Substance: CERIVASTATIN
     Indication: ILL-DEFINED DISORDER
     Dosage: UNK
     Route: 048

REACTIONS (3)
  - Cardiac disorder [Not Recovered/Not Resolved]
  - Myalgia [Recovering/Resolving]
  - Chromaturia [Unknown]

NARRATIVE: CASE EVENT DATE: 200011
